FAERS Safety Report 4890929-2 (Version None)
Quarter: 2006Q1

REPORT INFORMATION
  Report Type: 
  Country: None (occurrence: None)
  Receive Date: 20060125
  Receipt Date: 20060117
  Transmission Date: 20060701
  Serious: Yes (Other)
  Sender: FDA-Public Use
  Company Number: US-JNJFOC-20060103911

PATIENT
  Sex: Female
  Weight: 90.72 kg

DRUGS (5)
  1. TOPAMAX [Suspect]
     Indication: RHEUMATOID ARTHRITIS
     Route: 048
  2. TOPAMAX [Suspect]
     Indication: HEADACHE
     Route: 048
  3. DILAUDID [Concomitant]
     Indication: RHEUMATOID ARTHRITIS
  4. PREDNISONE [Concomitant]
  5. ASPIRIN [Concomitant]

REACTIONS (6)
  - AGITATION [None]
  - AMNESIA [None]
  - FALL [None]
  - INCORRECT DOSE ADMINISTERED [None]
  - MEMORY IMPAIRMENT [None]
  - PARAESTHESIA [None]
